FAERS Safety Report 10974700 (Version 2)
Quarter: 2015Q2

REPORT INFORMATION
  Report Type: Spontaneous
  Country: FR (occurrence: FR)
  Receive Date: 20150401
  Receipt Date: 20150528
  Transmission Date: 20150821
  Serious: Yes (Other)
  Sender: FDA-Public Use
  Company Number: FR-JNJFOC-20150317431

PATIENT
  Sex: Female

DRUGS (2)
  1. INTELENCE [Suspect]
     Active Substance: ETRAVIRINE
     Indication: HIV TEST POSITIVE
     Route: 048
  2. EPZICOM [Suspect]
     Active Substance: ABACAVIR SULFATE\LAMIVUDINE
     Indication: HIV TEST POSITIVE
     Dosage: 600/300 MG
     Route: 048

REACTIONS (1)
  - Exposure during pregnancy [Unknown]
